FAERS Safety Report 17975731 (Version 1)
Quarter: 2020Q3

REPORT INFORMATION
  Report Type: Spontaneous
  Country: FI (occurrence: FI)
  Receive Date: 20200702
  Receipt Date: 20200702
  Transmission Date: 20201103
  Serious: Yes (Life-Threatening, Hospitalization)
  Sender: FDA-Public Use
  Company Number: FI-ELI_LILLY_AND_COMPANY-FI202002000441

PATIENT
  Age: 48 Year
  Sex: Male

DRUGS (10)
  1. CLOZAPINE ACCORD [Suspect]
     Active Substance: CLOZAPINE
     Indication: SCHIZOPHRENIA
     Dosage: 100 MG, DAILY
     Route: 048
     Dates: start: 201703, end: 201703
  2. ZYPADHERA [Suspect]
     Active Substance: OLANZAPINE PAMOATE
     Indication: PRODUCT USED FOR UNKNOWN INDICATION
     Dosage: UNK UNK, UNKNOWN
     Route: 030
     Dates: start: 20130120, end: 2015
  3. RISPERDAL [Suspect]
     Active Substance: RISPERIDONE
     Indication: PRODUCT USED FOR UNKNOWN INDICATION
     Dosage: 1 MG, DAILY
     Route: 048
     Dates: start: 20161216, end: 20170116
  4. XEPLION [Suspect]
     Active Substance: PALIPERIDONE PALMITATE
     Dosage: UNK
     Route: 030
     Dates: start: 20161229, end: 20170130
  5. METFOREM [Suspect]
     Active Substance: METFORMIN HYDROCHLORIDE
     Indication: TYPE 2 DIABETES MELLITUS
     Dosage: 1000 MG, DAILY
     Route: 048
     Dates: start: 20170304
  6. LEPONEX [Suspect]
     Active Substance: CLOZAPINE
     Indication: SCHIZOPHRENIA
     Dosage: 100 MG, DAILY
     Route: 048
     Dates: start: 20170306, end: 20170420
  7. XEPLION [Suspect]
     Active Substance: PALIPERIDONE PALMITATE
     Indication: PRODUCT USED FOR UNKNOWN INDICATION
     Dosage: UNK, UNKNOWN
     Route: 030
     Dates: start: 20170117, end: 20170217
  8. ZYPADHERA [Suspect]
     Active Substance: OLANZAPINE PAMOATE
     Indication: PRODUCT USED FOR UNKNOWN INDICATION
     Dosage: UNK UNK, UNKNOWN
     Route: 030
     Dates: start: 20130120, end: 2015
  9. ZYPADHERA [Suspect]
     Active Substance: OLANZAPINE PAMOATE
     Indication: PRODUCT USED FOR UNKNOWN INDICATION
     Dosage: UNK UNK, UNKNOWN
     Route: 030
     Dates: start: 20130120, end: 2015
  10. CISORDINOL?ACUTARD [Suspect]
     Active Substance: ZUCLOPENTHIXOL ACETATE
     Indication: PRODUCT USED FOR UNKNOWN INDICATION
     Dosage: UNK, UNKNOWN
     Route: 030
     Dates: start: 20170201, end: 20170301

REACTIONS (6)
  - Pulmonary embolism [Recovered/Resolved]
  - Hepatic enzyme increased [Recovered/Resolved]
  - Drug ineffective [Recovered/Resolved]
  - Hepatic steatosis [Recovered/Resolved]
  - Liver injury [Recovered/Resolved]
  - Alanine aminotransferase increased [Recovered/Resolved]

NARRATIVE: CASE EVENT DATE: 20170317
